FAERS Safety Report 5025125-1 (Version None)
Quarter: 2006Q2

REPORT INFORMATION
  Report Type: 
  Country: None (occurrence: None)
  Receive Date: 20060426
  Receipt Date: 20060124
  Transmission Date: 20061013
  Serious: Yes (Other)
  Sender: FDA-Public Use
  Company Number: 2006012799

PATIENT
  Age: 83 Year
  Sex: Female
  Weight: 48.9885 kg

DRUGS (3)
  1. LYRICA [Suspect]
     Indication: HERPES ZOSTER
     Dosage: 150 MG (75 MG, 2 IN 1 D), ORAL
     Route: 048
     Dates: start: 20050101
  2. FOSAMAX [Concomitant]
  3. SYNTHROID [Concomitant]

REACTIONS (4)
  - BALANCE DISORDER [None]
  - PAIN [None]
  - POST HERPETIC NEURALGIA [None]
  - TREMOR [None]
